FAERS Safety Report 9529459 (Version 1)
Quarter: 2013Q3

REPORT INFORMATION
  Report Type: Spontaneous
  Country: FR (occurrence: FR)
  Receive Date: 20130917
  Receipt Date: 20130917
  Transmission Date: 20140515
  Serious: Yes (Hospitalization)
  Sender: FDA-Public Use
  Company Number: PHHY2013FR101132

PATIENT
  Age: 83 Year
  Sex: Female

DRUGS (11)
  1. ACLASTA [Suspect]
     Dosage: 5 MG, UNK
     Route: 042
     Dates: start: 20090602
  2. ACLASTA [Suspect]
     Dosage: 5 MG, UNK
     Route: 042
  3. ACLASTA [Suspect]
     Dosage: 5 MG, UNK
     Route: 042
     Dates: start: 20110719
  4. ACLASTA [Suspect]
     Dosage: 5 MG, UNK
     Route: 042
     Dates: start: 20120811
  5. PREVISCAN [Concomitant]
     Dosage: 0.5 DF, 1 IN 1 DAY
     Route: 048
  6. TAREG [Concomitant]
     Dosage: 160 MG, UNK
     Route: 048
     Dates: end: 20120815
  7. NOVATREX ^LEDERLE^ [Concomitant]
     Indication: RHEUMATOID ARTHRITIS
     Dosage: 15 MG, 1 IN 1 WEEK
     Route: 048
     Dates: start: 200901, end: 20120814
  8. VASITEN [Concomitant]
     Dosage: 20 MG, UNK
     Route: 048
  9. FUMARATO BISOPROLOL [Concomitant]
     Dosage: 10 MG, UNK
     Route: 048
  10. SPECIAFOLDINE [Concomitant]
     Dosage: 2 DF (0.2857), 1 IN 1 WEEK
     Route: 048
     Dates: end: 20120824
  11. CACIT VITAMIN D3 [Concomitant]
     Dosage: UNK UKN, UNK
     Route: 048

REACTIONS (3)
  - Confusional state [Recovered/Resolved]
  - Renal tubular necrosis [Recovering/Resolving]
  - Renal failure acute [Recovered/Resolved]
